FAERS Safety Report 24464855 (Version 1)
Quarter: 2024Q4

REPORT INFORMATION
  Report Type: Spontaneous
  Country: US (occurrence: US)
  Receive Date: 20241018
  Receipt Date: 20241018
  Transmission Date: 20250115
  Serious: No
  Sender: ROCHE
  Company Number: US-ROCHE-3502423

PATIENT
  Sex: Female

DRUGS (4)
  1. XOLAIR [Suspect]
     Active Substance: OMALIZUMAB
     Indication: Urticaria
     Route: 058
     Dates: start: 202211
  2. XOLAIR [Suspect]
     Active Substance: OMALIZUMAB
     Route: 058
  3. PREDNISONE [Concomitant]
     Active Substance: PREDNISONE
  4. CYCLOSPORINE [Concomitant]
     Active Substance: CYCLOSPORINE
     Dates: start: 202309

REACTIONS (4)
  - Off label use [Unknown]
  - No adverse event [Unknown]
  - Urticaria [Unknown]
  - Blood cholesterol increased [Unknown]

NARRATIVE: CASE EVENT DATE: 20240121
